FAERS Safety Report 24162192 (Version 1)
Quarter: 2024Q3

REPORT INFORMATION
  Report Type: Spontaneous
  Country: US (occurrence: None)
  Receive Date: 20240731
  Receipt Date: 20240731
  Transmission Date: 20241017
  Serious: Yes (Other)
  Sender: Public
  Company Number: None

PATIENT
  Age: 37 Year
  Sex: Male
  Weight: 96.75 kg

DRUGS (1)
  1. BUSPIRONE [Suspect]
     Active Substance: BUSPIRONE HYDROCHLORIDE
     Indication: Generalised anxiety disorder
     Dosage: OTHER QUANTITY : 1 TABLET(S);?FREQUENCY : 3 TIMES A DAY;?
     Route: 048
     Dates: start: 20240719, end: 20240726

REACTIONS (8)
  - Anxiety [None]
  - Insomnia [None]
  - Brain fog [None]
  - Cognitive disorder [None]
  - Panic attack [None]
  - Memory impairment [None]
  - Confusional state [None]
  - Suicidal ideation [None]

NARRATIVE: CASE EVENT DATE: 20240726
